FAERS Safety Report 8069174-8 (Version None)
Quarter: 2012Q1

REPORT INFORMATION
  Report Type: 
  Country: None (occurrence: None)
  Receive Date: 20120125
  Receipt Date: 20120123
  Transmission Date: 20120608
  Serious: No
  Sender: FDA-Public Use
  Company Number: US-PFIZER INC-2012018745

PATIENT
  Sex: Female
  Weight: 103.86 kg

DRUGS (5)
  1. RISPERDAL [Concomitant]
     Dosage: UNK
  2. CHANTIX [Suspect]
     Indication: SMOKING CESSATION THERAPY
     Dosage: 0.5 MG, 1X/DAY
     Route: 048
     Dates: start: 20120121
  3. DICLOFENAC [Concomitant]
     Dosage: UNK
  4. HYDROCODONE [Concomitant]
     Indication: PAIN
     Dosage: UNK
  5. ZOCOR [Concomitant]
     Dosage: UNK

REACTIONS (1)
  - STRESS [None]
